FAERS Safety Report 4275863-3 (Version None)
Quarter: 2004Q1

REPORT INFORMATION
  Report Type: 
  Country: None (occurrence: None)
  Receive Date: 20040121
  Receipt Date: 20030131
  Transmission Date: 20041129
  Serious: No
  Sender: FDA-Public Use
  Company Number: US-GLAXOSMITHKLINE-A0394889A

PATIENT
  Age: 54 Year
  Sex: Female

DRUGS (2)
  1. VALTREX [Suspect]
     Dosage: 4G SINGLE DOSE
     Route: 048
     Dates: start: 20030129, end: 20030129
  2. MULTIVITAMIN [Concomitant]

REACTIONS (1)
  - VOMITING [None]
